FAERS Safety Report 9862843 (Version 4)
Quarter: 2014Q2

REPORT INFORMATION
  Report Type: Spontaneous
  Country: US (occurrence: US)
  Receive Date: 20140203
  Receipt Date: 20140623
  Transmission Date: 20141212
  Serious: Yes (Other)
  Sender: FDA-Public Use
  Company Number: PHEH2014US001942

PATIENT
  Age: 35 Year
  Sex: Female

DRUGS (1)
  1. GILENYA [Suspect]
     Indication: MULTIPLE SCLEROSIS
     Dosage: 0.5 MG, QD
     Route: 048
     Dates: start: 20110912, end: 201308

REACTIONS (5)
  - Multiple sclerosis relapse [Unknown]
  - Gait disturbance [Unknown]
  - Dysarthria [Unknown]
  - Aphasia [Unknown]
  - Drug ineffective [Unknown]
